FAERS Safety Report 5966380-0 (Version None)
Quarter: 2008Q4

REPORT INFORMATION
  Report Type: 
  Country: None (occurrence: None)
  Receive Date: 20081125
  Receipt Date: 20081118
  Transmission Date: 20090506
  Serious: Yes (Death)
  Sender: FDA-Public Use
  Company Number: GB-AMGEN-US315301

PATIENT
  Sex: Male
  Weight: 65 kg

DRUGS (6)
  1. ENBREL [Suspect]
     Indication: PSORIATIC ARTHROPATHY
     Route: 058
     Dates: start: 20070801
  2. MIRTAZAPINE [Concomitant]
     Indication: DEPRESSION
     Dosage: UNKNOWN
     Route: 048
  3. MOBIC [Concomitant]
     Indication: ARTHRITIS
     Route: 048
  4. ACETAMINOPHEN W/ CODEINE [Concomitant]
     Indication: ARTHRITIS
     Dosage: 4 TO 8 PER DAY
     Route: 048
  5. METHOTREXATE [Concomitant]
     Indication: ARTHRITIS
     Route: 048
  6. FOLIC ACID [Concomitant]
     Indication: ARTHRITIS
     Route: 048

REACTIONS (1)
  - CARDIAC ARREST [None]
